FAERS Safety Report 8095151-7 (Version None)
Quarter: 2012Q1

REPORT INFORMATION
  Report Type: 
  Country: None (occurrence: None)
  Receive Date: 20120129
  Receipt Date: 20111229
  Transmission Date: 20120608
  Serious: No
  Sender: FDA-Public Use
  Company Number: US-ABBOTT-12P-163-0888528-00

PATIENT
  Age: 57 Year
  Sex: Female

DRUGS (13)
  1. VITAMIN B COMPLEX CAP [Concomitant]
     Indication: PRODUCT USED FOR UNKNOWN INDICATION
     Dosage: Q DAY
  2. GINKGO BILOBA [Concomitant]
     Indication: PRODUCT USED FOR UNKNOWN INDICATION
     Dosage: Q DAY
  3. PSYLLIUM [Concomitant]
     Indication: CONSTIPATION
     Dosage: Q DAY
  4. FLORADIX [Concomitant]
     Indication: PRODUCT USED FOR UNKNOWN INDICATION
     Dosage: EVERY DAY; DOSE NOT REPORTED
  5. SENNA [Concomitant]
     Indication: CONSTIPATION
     Dosage: Q DAY
  6. KELP [Concomitant]
     Indication: HYPOTHYROIDISM
     Dosage: Q DAY
  7. LACTULOSE [Concomitant]
     Indication: CONSTIPATION
     Dosage: Q DAY
  8. OXYCONTIN [Concomitant]
     Indication: PAIN
     Dosage: PRN PAIN
  9. ALPRAZOLAM [Concomitant]
     Indication: INSOMNIA
     Dosage: AT BEDTIME
  10. METHOTREXATE [Concomitant]
     Indication: PRODUCT USED FOR UNKNOWN INDICATION
     Dosage: 8 PILLS EVERY WEEK
  11. MELATONIN [Concomitant]
     Indication: INSOMNIA
     Dosage: AT BEDTIME - Q HS
  12. HUMIRA [Suspect]
     Indication: ANKYLOSING SPONDYLITIS
     Dates: start: 20111101
  13. FOLIC ACID [Concomitant]
     Indication: PRODUCT USED FOR UNKNOWN INDICATION
     Dosage: 1-2 PILLS Q DAY

REACTIONS (4)
  - MOBILITY DECREASED [None]
  - BACK PAIN [None]
  - PAIN [None]
  - JOINT RANGE OF MOTION DECREASED [None]
